FAERS Safety Report 4765516-7 (Version None)
Quarter: 2005Q3

REPORT INFORMATION
  Report Type: 
  Country: None (occurrence: None)
  Receive Date: 20050912
  Receipt Date: 20050902
  Transmission Date: 20060218
  Serious: Yes (Other)
  Sender: FDA-Public Use
  Company Number: DK-JNJFOC-20050806059

PATIENT
  Age: 49 Year
  Sex: Female
  Weight: 74 kg

DRUGS (9)
  1. REMICADE [Suspect]
     Indication: RHEUMATOID ARTHRITIS
     Dosage: 5MG/KG
     Route: 042
  2. METHOTREXATE [Concomitant]
     Indication: RHEUMATOID ARTHRITIS
     Route: 065
  3. PREDNISOLONE [Concomitant]
     Route: 065
  4. FOSAMAX [Concomitant]
     Route: 065
  5. LANSOPRAZOLE [Concomitant]
     Route: 065
  6. FOLIC ACID [Concomitant]
     Route: 065
  7. UNIKALK [Concomitant]
     Route: 065
  8. UNIKALK [Concomitant]
     Route: 065
  9. UNIKALK [Concomitant]
     Route: 065

REACTIONS (2)
  - BLINDNESS [None]
  - OPTIC NEURITIS [None]
